FAERS Safety Report 22628607 (Version 1)
Quarter: 2023Q2

REPORT INFORMATION
  Report Type: Spontaneous
  Country: US (occurrence: None)
  Receive Date: 20230621
  Receipt Date: 20230621
  Transmission Date: 20230721
  Serious: No
  Sender: FDA-Public Use
  Company Number: None

PATIENT
  Age: 69 Year
  Sex: Female

DRUGS (1)
  1. LEXAPRO [Suspect]
     Active Substance: ESCITALOPRAM OXALATE

REACTIONS (5)
  - Drug ineffective [None]
  - Nausea [None]
  - Regurgitation [None]
  - Dizziness [None]
  - Rash [None]

NARRATIVE: CASE EVENT DATE: 20230620
